FAERS Safety Report 13134951 (Version 2)
Quarter: 2017Q2

REPORT INFORMATION
  Report Type: Spontaneous
  Country: FR (occurrence: FR)
  Receive Date: 20170120
  Receipt Date: 20170412
  Transmission Date: 20170830
  Serious: Yes (Life-Threatening, Hospitalization, Other)
  Sender: FDA-Public Use
  Company Number: FR-ASTRAZENECA-2017SE04673

PATIENT
  Age: 19321 Day
  Sex: Male
  Weight: 122 kg

DRUGS (2)
  1. KARDEGIC [Suspect]
     Active Substance: ASPIRIN LYSINE
     Indication: MYOCARDIAL ISCHAEMIA
     Route: 048
  2. BRILIQUE [Suspect]
     Active Substance: TICAGRELOR
     Indication: MYOCARDIAL ISCHAEMIA
     Route: 048

REACTIONS (9)
  - Cardio-respiratory arrest [Recovered/Resolved]
  - Haemoglobin decreased [Unknown]
  - Influenza like illness [Unknown]
  - Acute coronary syndrome [Recovered/Resolved]
  - Ventricular fibrillation [Unknown]
  - Rectal haemorrhage [Unknown]
  - Blood pressure decreased [Unknown]
  - Vascular stent thrombosis [Recovered/Resolved]
  - Small intestinal haemorrhage [Unknown]

NARRATIVE: CASE EVENT DATE: 20170105
